FAERS Safety Report 18052030 (Version 2)
Quarter: 2020Q3

REPORT INFORMATION
  Report Type: Other
  Country: JP (occurrence: JP)
  Receive Date: 20200722
  Receipt Date: 20200925
  Transmission Date: 20201103
  Serious: Yes (Hospitalization, Disabling)
  Sender: FDA-Public Use
  Company Number: JP-ROCHE-2645318

PATIENT
  Age: 55 Year
  Sex: Male

DRUGS (5)
  1. METHYLPREDNISOLONE. [Concomitant]
     Active Substance: METHYLPREDNISOLONE
     Indication: PROPHYLAXIS AGAINST TRANSPLANT REJECTION
     Dosage: UNCERTAINTY
     Route: 065
     Dates: start: 200602
  2. RITUXAN [Suspect]
     Active Substance: RITUXIMAB
     Indication: PROPHYLAXIS AGAINST TRANSPLANT REJECTION
     Dosage: UNCERTAINTY
     Route: 041
     Dates: start: 200602
  3. CICLOSPORIN [Concomitant]
     Active Substance: CYCLOSPORINE
     Indication: PROPHYLAXIS AGAINST TRANSPLANT REJECTION
     Dosage: UNCERTAINTY
     Route: 048
  4. CELLCEPT [Suspect]
     Active Substance: MYCOPHENOLATE MOFETIL\MYCOPHENOLATE MOFETIL HYDROCHLORIDE
     Indication: PROPHYLAXIS AGAINST TRANSPLANT REJECTION
     Dosage: UNCERTAINTY
     Route: 048
     Dates: start: 200602
  5. SIMULECT [Concomitant]
     Active Substance: BASILIXIMAB
     Dosage: UNCERTAINTY
     Route: 042

REACTIONS (5)
  - Cytomegalovirus test positive [Recovered/Resolved]
  - Gastrointestinal haemorrhage [Recovered/Resolved with Sequelae]
  - Off label use [Unknown]
  - Peptic ulcer [Recovered/Resolved]
  - Duodenal ulcer haemorrhage [Unknown]
